FAERS Safety Report 8684278 (Version 4)
Quarter: 2013Q2

REPORT INFORMATION
  Report Type: Report from Study
  Country: SE (occurrence: SE)
  Receive Date: 20120726
  Receipt Date: 20130430
  Transmission Date: 20140414
  Serious: Yes (Other)
  Sender: FDA-Public Use
  Company Number: SE-SANOFI-AVENTIS-2012SA052488

PATIENT
  Age: 73 Year
  Sex: Male
  Weight: 86 kg

DRUGS (9)
  1. DOCETAXEL [Suspect]
     Indication: NON-SMALL CELL LUNG CANCER STAGE IV
     Dosage: EVERY 3 WEEKS, DAY 1 OF 21 DAY CYCLE
     Route: 041
     Dates: start: 20120628, end: 20120628
  2. BLINDED THERAPY [Suspect]
     Indication: NON-SMALL CELL LUNG CANCER STAGE IV
     Dosage: EVERY 3 WEEKS, DAY 1 OF 21 DAY CYCLE
     Route: 042
     Dates: start: 20120628, end: 20120628
  3. EZETIMIBE [Concomitant]
     Indication: HYPERCHOLESTEROLAEMIA
     Dates: start: 20111027
  4. PARACETAMOL [Concomitant]
     Indication: PAIN
     Dates: start: 20120314
  5. BUDESONIDE [Concomitant]
     Indication: CHRONIC OBSTRUCTIVE PULMONARY DISEASE
     Dates: start: 20120105
  6. TIOTROPIUM BROMIDE [Concomitant]
     Indication: CHRONIC OBSTRUCTIVE PULMONARY DISEASE
     Dates: start: 20120105
  7. BENZYDAMINE [Concomitant]
     Indication: APHTHOUS STOMATITIS
     Dates: start: 20120709
  8. BETAMETHASONE [Concomitant]
     Indication: PREMEDICATION
  9. ONDANSETRON [Concomitant]
     Indication: PREMEDICATION

REACTIONS (1)
  - Neutropenia [Unknown]
